FAERS Safety Report 5711216-6 (Version None)
Quarter: 2008Q2

REPORT INFORMATION
  Report Type: 
  Country: None (occurrence: None)
  Receive Date: 20080421
  Receipt Date: 20080407
  Transmission Date: 20081010
  Serious: Yes (Hospitalization, Other)
  Sender: FDA-Public Use
  Company Number: GB-JNJFOC-20080400028

PATIENT
  Sex: Female

DRUGS (6)
  1. TRAMADOL HCL [Suspect]
     Indication: PAIN
     Route: 042
  2. PARACETAMOL [Suspect]
     Indication: PAIN
     Dosage: 3 DF
     Route: 042
  3. HYPERICUM [Interacting]
     Indication: DRUG USE FOR UNKNOWN INDICATION
     Route: 065
  4. GABAPENTIN [Suspect]
     Indication: NEURALGIA
     Route: 065
  5. PETHIDINE [Suspect]
     Indication: PAIN
     Route: 042
  6. ORAL CONTRACEPTIVE NOS [Concomitant]
     Indication: CONTRACEPTION
     Route: 048

REACTIONS (6)
  - CONFUSIONAL STATE [None]
  - DRUG INTERACTION [None]
  - HALLUCINATION, VISUAL [None]
  - PYREXIA [None]
  - SEROTONIN SYNDROME [None]
  - TREMOR [None]
